FAERS Safety Report 17537089 (Version 2)
Quarter: 2020Q1

REPORT INFORMATION
  Report Type: Spontaneous
  Country: US (occurrence: US)
  Receive Date: 20200313
  Receipt Date: 20200325
  Transmission Date: 20200409
  Serious: Yes (Other)
  Sender: FDA-Public Use
  Company Number: US-GLAXOSMITHKLINE-US2020041830

PATIENT
  Age: 61 Year
  Sex: Female

DRUGS (2)
  1. ADVAIR DISKUS [Suspect]
     Active Substance: FLUTICASONE PROPIONATE\SALMETEROL XINAFOATE
     Dosage: UNK, 500/50 MCG
     Route: 065
  2. ADVAIR DISKUS [Suspect]
     Active Substance: FLUTICASONE PROPIONATE\SALMETEROL XINAFOATE
     Indication: PRODUCT USED FOR UNKNOWN INDICATION
     Dosage: UNK, 250/50 MCG
     Route: 065
     Dates: start: 2002

REACTIONS (9)
  - Dysphonia [Recovered/Resolved]
  - Gait disturbance [Unknown]
  - Vocal cord disorder [Not Recovered/Not Resolved]
  - Condition aggravated [Unknown]
  - Aphonia [Unknown]
  - Expired product administered [Unknown]
  - Plasma cell myeloma [Not Recovered/Not Resolved]
  - Cancer surgery [Unknown]
  - Therapeutic product effect incomplete [Unknown]

NARRATIVE: CASE EVENT DATE: 20110506
